FAERS Safety Report 24617098 (Version 1)
Quarter: 2024Q4

REPORT INFORMATION
  Report Type: Spontaneous
  Country: US (occurrence: US)
  Receive Date: 20241114
  Receipt Date: 20241114
  Transmission Date: 20250114
  Serious: No
  Sender: JOHNSON AND JOHNSON
  Company Number: US-JNJFOC-20241072694

PATIENT

DRUGS (1)
  1. EVITHROM [Suspect]
     Active Substance: THROMBIN HUMAN
     Indication: Haemorrhage
     Route: 065

REACTIONS (9)
  - Haematoma [Unknown]
  - Infection [Unknown]
  - Hypersensitivity [Unknown]
  - Osteoporosis [Unknown]
  - Hypervolaemia [Unknown]
  - Pain [Unknown]
  - Adverse drug reaction [Unknown]
  - Haemorrhage [Unknown]
  - Drug ineffective [Unknown]
